FAERS Safety Report 9159277 (Version 1)
Quarter: 2013Q1

REPORT INFORMATION
  Report Type: Spontaneous
  Country: US (occurrence: US)
  Receive Date: 20130313
  Receipt Date: 20130313
  Transmission Date: 20140127
  Serious: Yes (Other)
  Sender: FDA-Public Use
  Company Number: US-SANOFI-AVENTIS-2013SA023807

PATIENT
  Sex: Male

DRUGS (3)
  1. LANTUS [Suspect]
     Route: 051
  2. NOVOLOG [Suspect]
  3. VICTOZA [Suspect]
     Route: 065

REACTIONS (4)
  - Pneumonia [Unknown]
  - Blood glucose decreased [Recovered/Resolved]
  - Blood glucose increased [Recovered/Resolved]
  - Glycosylated haemoglobin increased [Recovered/Resolved]
